FAERS Safety Report 11305169 (Version 1)
Quarter: 2015Q3

REPORT INFORMATION
  Report Type: Spontaneous
  Country: US (occurrence: US)
  Receive Date: 20150723
  Receipt Date: 20150723
  Transmission Date: 20151125
  Serious: No
  Sender: FDA-Public Use
  Company Number: US-JNJFOC-20141016394

PATIENT
  Age: 74 Year
  Sex: Female
  Weight: 55.79 kg

DRUGS (5)
  1. ^CANCER MEDICATIONS^ (NOS) [Concomitant]
     Indication: NEOPLASM MALIGNANT
     Route: 065
  2. ZYRTEC [Suspect]
     Active Substance: CETIRIZINE HYDROCHLORIDE
     Route: 048
  3. ZYRTEC [Suspect]
     Active Substance: CETIRIZINE HYDROCHLORIDE
     Indication: WHITE BLOOD CELL COUNT
     Route: 048
  4. NATURAL SUPPLEMENTS [Concomitant]
     Indication: NUTRITIONAL SUPPLEMENTATION
     Route: 065
  5. ^HEART MEDICATIONS^ [Concomitant]
     Indication: CARDIAC DISORDER
     Route: 065

REACTIONS (2)
  - Product use issue [Unknown]
  - Somnolence [Unknown]
